FAERS Safety Report 11533951 (Version 4)
Quarter: 2015Q4

REPORT INFORMATION
  Report Type: Spontaneous
  Country: ES (occurrence: ES)
  Receive Date: 20150922
  Receipt Date: 20151216
  Transmission Date: 20160304
  Serious: Yes (Other)
  Sender: FDA-Public Use
  Company Number: ES-AMGEN-ESPSP2015079117

PATIENT
  Age: 67 Year
  Sex: Female

DRUGS (26)
  1. PAROXETINE [Concomitant]
     Active Substance: PAROXETINE\PAROXETINE HYDROCHLORIDE
     Indication: DEPRESSION
     Dosage: 20 MG, 1X/DAY (1 TABLET AT MIDDAY )
  2. SECALIP [Concomitant]
     Active Substance: FENOFIBRATE
     Indication: HYPERCHOLESTEROLAEMIA
     Dosage: 1 DF, 1X/DAY (1 TABLET EVERY 24 HOURS)
  3. CRESTOR [Concomitant]
     Active Substance: ROSUVASTATIN CALCIUM
     Indication: BLOOD TRIGLYCERIDES INCREASED
     Dosage: 5 MG, 1X/DAY (1 TABLET EVERY 24 HOURS)
  4. ACFOL [Concomitant]
     Active Substance: FOLIC ACID
     Dosage: 1 DF, WEEKLY (1 TABLET DAILY (EVERY THURSDAY))
  5. LANTUS [Concomitant]
     Active Substance: INSULIN GLARGINE
     Indication: DIABETES MELLITUS
     Dosage: 20 IU, 1X/DAY (AT NIGHT)
  6. ENBREL [Interacting]
     Active Substance: ETANERCEPT
     Dosage: 50 MG, WEEKLY
     Route: 058
  7. METHOTREXATE SODIUM. [Interacting]
     Active Substance: METHOTREXATE SODIUM
     Indication: PSORIATIC ARTHROPATHY
  8. QUETIAPINE [Concomitant]
     Active Substance: QUETIAPINE
     Indication: INSOMNIA
  9. ENBREL [Suspect]
     Active Substance: ETANERCEPT
     Indication: PSORIATIC ARTHROPATHY
     Dosage: 50 MG, WEEKLY
     Route: 058
     Dates: start: 20150618
  10. METHOTREXATE SODIUM. [Interacting]
     Active Substance: METHOTREXATE SODIUM
     Indication: PSORIATIC ARTHROPATHY
     Dosage: 7.5 MG, WEEKLY (1 TABLET AT 2.5 MG EVERY 8 HOURS EVERY WEDNESDAY)
     Route: 048
     Dates: start: 2014, end: 2015
  11. EUTIROX [Concomitant]
     Active Substance: LEVOTHYROXINE SODIUM
     Indication: THYROID DISORDER
     Dosage: 100 MUG, 1X/DAY (1 TABLET EVERY 24 HOURS)
  12. ROCALTROL [Concomitant]
     Active Substance: CALCITRIOL
     Indication: VITAMIN D ABNORMAL
     Dosage: 2 DF, 1X/DAY (2 TABLETS OF 0.25 AT MIDDAY)
  13. BROMAZEPAM [Concomitant]
     Active Substance: BROMAZEPAM
     Indication: DEPRESSION
     Dosage: 1 DF, 2X/DAY (1 TABLET EVERY 12 HOURS)
  14. CEFALIN                            /00010902/ [Concomitant]
     Indication: HYPERCHOLESTEROLAEMIA
     Dosage: 1.45 UNK, UNK
  15. VALSARTAN. [Concomitant]
     Active Substance: VALSARTAN
     Indication: HYPERTENSION
     Dosage: 1 DF, 1X/DAY (1 TABLET EVERY 24 HOURS)
  16. NATECAL [Concomitant]
     Active Substance: CALCIUM CARBONATE\CHOLECALCIFEROL
     Indication: BLOOD CALCIUM ABNORMAL
     Dosage: 600 MG, UNK
  17. ATENOLOL. [Concomitant]
     Active Substance: ATENOLOL
     Indication: HYPERTENSION
     Dosage: 1 DF, 1X/DAY
  18. QUETIAPINE [Concomitant]
     Active Substance: QUETIAPINE
     Indication: INSOMNIA
     Dosage: 25 MG, 1X/DAY
  19. TRAMADOL. [Concomitant]
     Active Substance: TRAMADOL
     Indication: ANALGESIC THERAPY
     Dosage: 50 MG, 1X/DAY
  20. TRAMADOL. [Concomitant]
     Active Substance: TRAMADOL
     Indication: PAIN
  21. ENBREL [Interacting]
     Active Substance: ETANERCEPT
     Dosage: 50 MG, WEEKLY
     Route: 058
  22. PANKREOFLAT                        /00333301/ [Concomitant]
     Indication: FLATULENCE
     Dosage: 1 DF, 3X/DAY (1 TABLET EVERY 8 HOURS)
  23. TRAMADOL RETARD [Concomitant]
     Active Substance: TRAMADOL
     Indication: ANALGESIC THERAPY
     Dosage: UNK, 2X/DAY
  24. PANTOPRAZOLE [Concomitant]
     Active Substance: PANTOPRAZOLE SODIUM
     Dosage: UNK
  25. HIDROFEROL [Concomitant]
     Active Substance: CALCIFEDIOL
     Dosage: 1 DF, MONTHLY
  26. AMLODIPINE [Concomitant]
     Active Substance: AMLODIPINE BESYLATE
     Indication: HYPERTENSION
     Dosage: UNK

REACTIONS (26)
  - Psoriatic arthropathy [Recovered/Resolved]
  - Neck pain [Recovering/Resolving]
  - Headache [Not Recovered/Not Resolved]
  - Throat irritation [Not Recovered/Not Resolved]
  - Injection site haemorrhage [Recovered/Resolved]
  - Somnolence [Recovered/Resolved]
  - Pain [Recovering/Resolving]
  - White blood cell count decreased [Not Recovered/Not Resolved]
  - Pharyngeal erythema [Not Recovered/Not Resolved]
  - Dysphagia [Not Recovered/Not Resolved]
  - Drug effect incomplete [Recovered/Resolved]
  - Musculoskeletal pain [Recovering/Resolving]
  - Oropharyngeal pain [Not Recovered/Not Resolved]
  - Drug interaction [Not Recovered/Not Resolved]
  - Condition aggravated [Recovering/Resolving]
  - Condition aggravated [Recovered/Resolved]
  - Blood glucose abnormal [Not Recovered/Not Resolved]
  - Pain in extremity [Recovering/Resolving]
  - Hypertension [Not Recovered/Not Resolved]
  - Injection site mass [Recovered/Resolved]
  - Fatigue [Recovered/Resolved]
  - Disease recurrence [Not Recovered/Not Resolved]
  - Injection site urticaria [Recovered/Resolved]
  - Arthralgia [Recovering/Resolving]
  - Nasopharyngitis [Not Recovered/Not Resolved]
  - Injection site haematoma [Recovered/Resolved]

NARRATIVE: CASE EVENT DATE: 2015
